FAERS Safety Report 24089880 (Version 1)
Quarter: 2024Q3

REPORT INFORMATION
  Report Type: Spontaneous
  Country: GB (occurrence: GB)
  Receive Date: 20240715
  Receipt Date: 20240715
  Transmission Date: 20241017
  Serious: Yes (Other)
  Sender: CHEPLAPHARM
  Company Number: None

PATIENT

DRUGS (2)
  1. OLANZAPINE [Suspect]
     Active Substance: OLANZAPINE
     Dosage: 15MG OD?DAILY DOSE: 15 MILLIGRAM
     Dates: end: 20240508
  2. ARIPIPRAZOLE [Concomitant]
     Active Substance: ARIPIPRAZOLE

REACTIONS (4)
  - Rash [Recovering/Resolving]
  - Mental impairment [Not Recovered/Not Resolved]
  - Product dispensing error [Unknown]
  - Wrong product administered [Unknown]
